FAERS Safety Report 5391386-2 (Version None)
Quarter: 2007Q3

REPORT INFORMATION
  Report Type: 
  Country: None (occurrence: None)
  Receive Date: 20070719
  Receipt Date: 20070718
  Transmission Date: 20080115
  Serious: Yes (Hospitalization)
  Sender: FDA-Public Use
  Company Number: US-BRISTOL-MYERS SQUIBB COMPANY-13849344

PATIENT
  Sex: Female
  Weight: 68 kg

DRUGS (9)
  1. PACLITAXEL [Suspect]
     Route: 042
     Dates: start: 20070504, end: 20070504
  2. CARBOPLATIN [Suspect]
     Indication: NEOPLASM MALIGNANT
     Route: 042
     Dates: start: 20060504, end: 20070504
  3. ETOPOSIDE [Suspect]
     Indication: NEOPLASM MALIGNANT
     Route: 048
     Dates: start: 20070511, end: 20070511
  4. LISINOPRIL [Concomitant]
     Indication: HYPERTENSION
  5. PHENYTOIN [Concomitant]
     Indication: CONVULSION
  6. ATENOLOL [Concomitant]
     Indication: HYPERTENSION
  7. DEXAMETHASONE 0.5MG TAB [Concomitant]
     Indication: OEDEMA
  8. HYDROCHLOROTHIAZIDE [Concomitant]
     Indication: OEDEMA
  9. BUPROPION HCL [Concomitant]
     Indication: DEPRESSION

REACTIONS (2)
  - BRAIN OEDEMA [None]
  - GASTROOESOPHAGEAL REFLUX DISEASE [None]
